FAERS Safety Report 9802512 (Version 2)
Quarter: 2014Q1

REPORT INFORMATION
  Report Type: Spontaneous
  Country: US (occurrence: US)
  Receive Date: 20140107
  Receipt Date: 20140210
  Transmission Date: 20141002
  Serious: No
  Sender: FDA-Public Use
  Company Number: US-009507513-1401USA002093

PATIENT
  Age: 78 Year
  Sex: Female
  Weight: 80.73 kg

DRUGS (5)
  1. OXYTROL FOR WOMEN [Suspect]
     Indication: POLLAKIURIA
     Dosage: UNK, UNKNOWN
     Route: 062
     Dates: start: 201311, end: 201312
  2. BENAZEPRIL HYDROCHLORIDE [Concomitant]
     Indication: HYPERTENSION
     Dosage: UNK, UNKNOWN
  3. ASPIRIN [Concomitant]
     Indication: HYPERTENSION
     Dosage: 81 MG, BID
  4. SODIUM CHLORIDE [Concomitant]
     Indication: SINUSITIS
     Dosage: UNK, UNKNOWN
  5. CHOLECALCIFEROL [Concomitant]
     Indication: PRODUCT USED FOR UNKNOWN INDICATION
     Dosage: UNK, UNKNOWN

REACTIONS (2)
  - Application site rash [Recovered/Resolved]
  - Pruritus [Recovered/Resolved]
